FAERS Safety Report 19657360 (Version 1)
Quarter: 2021Q3

REPORT INFORMATION
  Report Type: Report from Study
  Country: US (occurrence: US)
  Receive Date: 20210804
  Receipt Date: 20210804
  Transmission Date: 20211014
  Serious: Yes (Hospitalization)
  Sender: FDA-Public Use
  Company Number: US-PFIZER INC-2021328125

PATIENT
  Age: 58 Year
  Sex: Male
  Weight: 109.7 kg

DRUGS (26)
  1. ETOPOSIDE. [Suspect]
     Active Substance: ETOPOSIDE
     Dosage: 230 MG, 1 IN 1 D, CYCLE 3
     Route: 042
     Dates: start: 20201229, end: 20201231
  2. ETOPOSIDE. [Suspect]
     Active Substance: ETOPOSIDE
     Indication: B-CELL LYMPHOMA
     Dosage: 400 MG, AS PART OF HDCT
     Dates: start: 20210122, end: 20210125
  3. CARMUSTINE. [Suspect]
     Active Substance: CARMUSTINE
     Indication: B-CELL LYMPHOMA
     Dosage: 300 MG
     Dates: start: 20210121, end: 20210122
  4. HYDROCHLOROTHIAZIDE. [Concomitant]
     Active Substance: HYDROCHLOROTHIAZIDE
  5. RITUXIMAB. [Suspect]
     Active Substance: RITUXIMAB
     Dosage: 850 MG, 1 IN 1 D, CYCLE 2
     Route: 042
     Dates: start: 20201203, end: 20201203
  6. IFOSFAMIDE. [Suspect]
     Active Substance: IFOSFAMIDE
     Dosage: 11500 MG, ONCE, CYCLE 2
     Route: 042
     Dates: start: 20201204, end: 20201205
  7. ETOPOSIDE. [Suspect]
     Active Substance: ETOPOSIDE
     Indication: B-CELL LYMPHOMA
     Dosage: 230 MG, 1 IN 1 D, CYCLE 1
     Route: 042
     Dates: start: 20201113, end: 20201115
  8. IFOSFAMIDE. [Suspect]
     Active Substance: IFOSFAMIDE
     Dosage: 11500 MG, ONCE, CYCLE 3
     Route: 042
     Dates: start: 20201230, end: 20201231
  9. ETOPOSIDE. [Suspect]
     Active Substance: ETOPOSIDE
     Dosage: 230 MG, 1 IN 1 D, CYCLE 2
     Route: 042
     Dates: start: 20201203, end: 20201205
  10. MELPHALAN. [Suspect]
     Active Substance: MELPHALAN
     Indication: B-CELL LYMPHOMA
     Dosage: 322 MG
     Dates: start: 20210126, end: 20210126
  11. TELMISARTAN. [Concomitant]
     Active Substance: TELMISARTAN
  12. CLARITIN [Concomitant]
     Active Substance: LORATADINE
     Indication: PROPHYLAXIS
  13. FLUCONAZOLE. [Concomitant]
     Active Substance: FLUCONAZOLE
     Indication: PROPHYLAXIS
  14. CARBOPLATIN. [Suspect]
     Active Substance: CARBOPLATIN
     Indication: B-CELL LYMPHOMA
     Dosage: 730 MG, 1 IN 1 D, CYCLE 1
     Route: 042
     Dates: start: 20201114, end: 20201114
  15. CARBOPLATIN. [Suspect]
     Active Substance: CARBOPLATIN
     Dosage: 720 MG, 1 IN 1 D, CYCLE 3
     Route: 042
     Dates: start: 20201230, end: 20201230
  16. IFOSFAMIDE. [Suspect]
     Active Substance: IFOSFAMIDE
     Indication: B-CELL LYMPHOMA
     Dosage: 11500 MG, ONCE, CYCLE 1
     Route: 042
     Dates: start: 20201114, end: 20201115
  17. ETOPOSIDE. [Suspect]
     Active Substance: ETOPOSIDE
     Dosage: UNK
     Dates: start: 20210122, end: 20210125
  18. OMEPRAZOLE. [Concomitant]
     Active Substance: OMEPRAZOLE
     Indication: GASTROOESOPHAGEAL REFLUX DISEASE
  19. URSODIOL. [Concomitant]
     Active Substance: URSODIOL
     Indication: PROPHYLAXIS
  20. CYTARABINE. [Suspect]
     Active Substance: CYTARABINE
     Indication: B-CELL LYMPHOMA
     Dosage: 400 MG
     Dates: start: 20210122, end: 20210125
  21. CARBOPLATIN. [Suspect]
     Active Substance: CARBOPLATIN
     Dosage: 720 MG, 1 IN 1 D, CYCLE 2
     Route: 042
     Dates: start: 20201204, end: 20201204
  22. RITUXIMAB. [Suspect]
     Active Substance: RITUXIMAB
     Indication: B-CELL LYMPHOMA
     Dosage: 850 MG, 1 IN 1 D, CYCLE 1
     Route: 042
     Dates: start: 20201113, end: 20201113
  23. RITUXIMAB. [Suspect]
     Active Substance: RITUXIMAB
     Dosage: 850 MG, 1 IN 1 D, CYCLE 3
     Route: 042
     Dates: start: 20201229, end: 20201229
  24. ORNITHINE [Concomitant]
     Active Substance: ORNITHINE
  25. MELATONIN [Concomitant]
     Active Substance: MELATONIN
     Indication: INSOMNIA
  26. LEVOFLOXACIN. [Concomitant]
     Active Substance: LEVOFLOXACIN
     Indication: PROPHYLAXIS

REACTIONS (2)
  - Neutropenia [Recovered/Resolved]
  - Chills [Recovered/Resolved]

NARRATIVE: CASE EVENT DATE: 20210202
